FAERS Safety Report 4745379-6 (Version None)
Quarter: 2005Q3

REPORT INFORMATION
  Report Type: 
  Country: None (occurrence: None)
  Receive Date: 20050815
  Receipt Date: 20050728
  Transmission Date: 20060218
  Serious: Yes (Other)
  Sender: FDA-Public Use
  Company Number: TRP_0146_2005

PATIENT
  Age: 37 Year
  Sex: Male

DRUGS (1)
  1. RIBASPHERE [Suspect]
     Dosage: PO
     Route: 048

REACTIONS (10)
  - DECREASED APPETITE [None]
  - DEPRESSION [None]
  - ERYTHEMA [None]
  - FATIGUE [None]
  - HAEMOGLOBIN DECREASED [None]
  - IRRITABILITY [None]
  - MOOD SWINGS [None]
  - RASH PRURITIC [None]
  - WEIGHT DECREASED [None]
  - WHITE BLOOD CELL COUNT DECREASED [None]
